FAERS Safety Report 22209038 (Version 1)
Quarter: 2023Q2

REPORT INFORMATION
  Report Type: Other
  Country: US (occurrence: US)
  Receive Date: 20230413
  Receipt Date: 20230413
  Transmission Date: 20230722
  Serious: No
  Sender: FDA-Public Use
  Company Number: US-TRAVERE-2022TVT00569

PATIENT
  Age: 17 Year
  Sex: Female

DRUGS (1)
  1. CHOLIC ACID [Suspect]
     Active Substance: CHOLIC ACID
     Indication: Lipid metabolism disorder
     Route: 048
     Dates: start: 20150522

REACTIONS (3)
  - Swelling face [Unknown]
  - Headache [Unknown]
  - Nausea [Unknown]
